FAERS Safety Report 7017042-2 (Version None)
Quarter: 2010Q3

REPORT INFORMATION
  Report Type: 
  Country: None (occurrence: None)
  Receive Date: 20100927
  Receipt Date: 20100920
  Transmission Date: 20110219
  Serious: No
  Sender: FDA-Public Use
  Company Number: US-PFIZER INC-2010119825

PATIENT
  Sex: Male
  Weight: 108.84 kg

DRUGS (7)
  1. NEURONTIN [Suspect]
     Indication: NEUROPATHY PERIPHERAL
     Dosage: 600 MG, 3X/DAY
     Route: 048
     Dates: start: 20100601
  2. LISINOPRIL [Concomitant]
     Dosage: 20 MG, 1X/DAY
  3. LOPID [Concomitant]
     Dosage: 15 MG, 1X/DAY
  4. SYNTHROID [Concomitant]
     Dosage: 100 MG, 1X/DAY
  5. NORVASC [Concomitant]
     Dosage: UNK
  6. ZOLOFT [Concomitant]
     Dosage: UNK
  7. LANTUS [Concomitant]
     Dosage: UNK

REACTIONS (3)
  - DRUG INEFFECTIVE [None]
  - HAEMATOCRIT DECREASED [None]
  - RED BLOOD CELL SEDIMENTATION RATE INCREASED [None]
